FAERS Safety Report 11690632 (Version 1)
Quarter: 2015Q4

REPORT INFORMATION
  Report Type: Report from Study
  Country: US (occurrence: US)
  Receive Date: 20151102
  Receipt Date: 20151102
  Transmission Date: 20160304
  Serious: No
  Sender: FDA-Public Use
  Company Number: PHEH2014US020204

PATIENT
  Age: 39 Year
  Sex: Female

DRUGS (2)
  1. GILENYA [Suspect]
     Active Substance: FINGOLIMOD HYDROCHLORIDE
     Indication: MULTIPLE SCLEROSIS
     Dosage: 0.5 MG, QD
     Route: 048
     Dates: start: 20141007
  2. LOSARTAN. [Concomitant]
     Active Substance: LOSARTAN
     Indication: PRODUCT USED FOR UNKNOWN INDICATION
     Dosage: 50 MG, UNK
     Route: 065

REACTIONS (11)
  - Nausea [Recovering/Resolving]
  - Bone pain [Unknown]
  - Headache [Recovering/Resolving]
  - Malaise [Unknown]
  - Pain [Unknown]
  - Pollakiuria [Unknown]
  - Photophobia [Recovering/Resolving]
  - Nasopharyngitis [Unknown]
  - Multiple sclerosis relapse [Unknown]
  - Balance disorder [Unknown]
  - Pain in extremity [Unknown]

NARRATIVE: CASE EVENT DATE: 20141007
